FAERS Safety Report 5742643-9 (Version None)
Quarter: 2008Q2

REPORT INFORMATION
  Report Type: 
  Country: None (occurrence: None)
  Receive Date: 20080515
  Receipt Date: 20080515
  Transmission Date: 20081010
  Serious: Yes (Death, Life-Threatening)
  Sender: FDA-Public Use
  Company Number: None

PATIENT
  Sex: Female
  Weight: 71.3 kg

DRUGS (4)
  1. CELEXA [Suspect]
     Indication: DEPRESSION
     Dosage: 20MG DAILY PO
     Route: 048
  2. ZYPREXA [Suspect]
     Indication: MENTAL STATUS CHANGES
     Dosage: 5MG 2 TIMES A DAY PO
     Route: 048
  3. NAMENDA [Concomitant]
  4. DIFLUCAN [Concomitant]

REACTIONS (4)
  - LEUKOCYTOSIS [None]
  - MENTAL STATUS CHANGES [None]
  - NEUROLEPTIC MALIGNANT SYNDROME [None]
  - NO THERAPEUTIC RESPONSE [None]
